FAERS Safety Report 7395364-3 (Version None)
Quarter: 2011Q2

REPORT INFORMATION
  Report Type: 
  Country: None (occurrence: None)
  Receive Date: 20110405
  Receipt Date: 20110329
  Transmission Date: 20111010
  Serious: Yes (Hospitalization, Other)
  Sender: FDA-Public Use
  Company Number: US-ABBOTT-11P-163-0715592-00

PATIENT
  Sex: Male
  Weight: 124.85 kg

DRUGS (8)
  1. ALBUTEROL SULFATE ER [Concomitant]
     Indication: CHRONIC OBSTRUCTIVE PULMONARY DISEASE
  2. ALBUTEROL [Concomitant]
     Indication: CHRONIC OBSTRUCTIVE PULMONARY DISEASE
  3. HUMIRA [Suspect]
     Dates: start: 20101101
  4. HUMIRA [Suspect]
     Indication: RHEUMATOID ARTHRITIS
     Dates: start: 20091101, end: 20100301
  5. PREDNISONE [Concomitant]
     Indication: RHEUMATOID ARTHRITIS
  6. CHEOPHYLINE TD [Concomitant]
     Indication: CHRONIC OBSTRUCTIVE PULMONARY DISEASE
  7. HUMIRA [Suspect]
     Dates: start: 20100501
  8. IPRAPROPIUM CHROMIDE/ALBUTEROL SULFATE [Concomitant]
     Indication: CHRONIC OBSTRUCTIVE PULMONARY DISEASE
     Dosage: NEBULIZER-2-3 TIMES DAILY AS NEEDED

REACTIONS (6)
  - MALAISE [None]
  - BRONCHITIS [None]
  - ABDOMINAL PAIN [None]
  - SPUTUM DISCOLOURED [None]
  - APPENDICITIS [None]
  - INFECTION [None]
